FAERS Safety Report 11416132 (Version 1)
Quarter: 2015Q3

REPORT INFORMATION
  Report Type: Spontaneous
  Country: US (occurrence: US)
  Receive Date: 20150825
  Receipt Date: 20150825
  Transmission Date: 20151125
  Serious: No
  Sender: FDA-Public Use
  Company Number: US-TEVA-553646USA

PATIENT
  Age: 79 Year
  Sex: Female
  Weight: 55.33 kg

DRUGS (9)
  1. ZOLOFT [Concomitant]
     Active Substance: SERTRALINE HYDROCHLORIDE
     Dates: start: 2010
  2. LOSARTAN. [Concomitant]
     Active Substance: LOSARTAN
  3. FEXOFENADINE [Suspect]
     Active Substance: FEXOFENADINE\FEXOFENADINE HYDROCHLORIDE
     Route: 048
     Dates: start: 20150401, end: 20150401
  4. FEXOFENADINE [Suspect]
     Active Substance: FEXOFENADINE\FEXOFENADINE HYDROCHLORIDE
     Indication: RHINORRHOEA
     Route: 048
     Dates: start: 20150228, end: 20150228
  5. VITAMINS NOS [Concomitant]
     Active Substance: VITAMINS
     Dates: start: 201410
  6. IRON [Concomitant]
     Active Substance: IRON
     Dates: start: 201410
  7. FEXOFENADINE [Suspect]
     Active Substance: FEXOFENADINE\FEXOFENADINE HYDROCHLORIDE
     Indication: PRURITUS
     Dosage: 270 MILLIGRAM DAILY;
     Route: 048
     Dates: start: 20150301, end: 20150331
  8. ZOCOR [Concomitant]
     Active Substance: SIMVASTATIN
  9. DYAZIDE [Concomitant]
     Active Substance: HYDROCHLOROTHIAZIDE\TRIAMTERENE

REACTIONS (5)
  - Incorrect dose administered [Unknown]
  - Drug ineffective [Unknown]
  - Drug administered to patient of inappropriate age [Unknown]
  - Wrong technique in product usage process [Unknown]
  - Product use issue [Unknown]

NARRATIVE: CASE EVENT DATE: 20150228
